FAERS Safety Report 7128077-3 (Version None)
Quarter: 2010Q4

REPORT INFORMATION
  Report Type: 
  Country: None (occurrence: None)
  Receive Date: 20101130
  Receipt Date: 20101119
  Transmission Date: 20110411
  Serious: Yes (Hospitalization, Other)
  Sender: FDA-Public Use
  Company Number: US-ASTRAZENECA-2010SE55241

PATIENT
  Age: 61 Year
  Sex: Female
  Weight: 69.9 kg

DRUGS (2)
  1. ARIMIDEX [Suspect]
     Indication: BREAST CANCER
     Route: 048
     Dates: start: 20050101, end: 20101117
  2. FISH OIL [Concomitant]

REACTIONS (4)
  - HEADACHE [None]
  - HYSTERECTOMY [None]
  - METASTASES TO OVARY [None]
  - NEOPLASM RECURRENCE [None]
